FAERS Safety Report 10035458 (Version 2)
Quarter: 2014Q2

REPORT INFORMATION
  Report Type: Spontaneous
  Country: US (occurrence: US)
  Receive Date: 20140325
  Receipt Date: 20140417
  Transmission Date: 20141212
  Serious: No
  Sender: FDA-Public Use
  Company Number: US-PFIZER INC-2014080975

PATIENT
  Age: 51 Year
  Sex: Female

DRUGS (4)
  1. FLECTOR [Suspect]
     Indication: BACK PAIN
     Dosage: 1 DF, 1X/DAY
     Route: 062
     Dates: start: 20140212, end: 20140312
  2. METOPROLOL SUCCINATE [Concomitant]
     Indication: BLOOD PRESSURE
     Dosage: 25 MG, 1X/DAY
     Route: 048
     Dates: start: 20140212
  3. DIAZEPAM [Concomitant]
     Indication: ANXIETY
     Dosage: 5 MG, 2X/DAY
     Route: 048
     Dates: start: 20131212
  4. TRAZODONE [Concomitant]
     Indication: INSOMNIA
     Dosage: 50 MG, 1X/DAY
     Route: 048
     Dates: start: 20140212

REACTIONS (2)
  - Hypoaesthesia [Recovered/Resolved]
  - Urinary incontinence [Recovered/Resolved]
